FAERS Safety Report 7722976-7 (Version None)
Quarter: 2011Q3

REPORT INFORMATION
  Report Type: 
  Country: None (occurrence: None)
  Receive Date: 20110901
  Receipt Date: 20110822
  Transmission Date: 20111222
  Serious: Yes (Death, Other)
  Sender: FDA-Public Use
  Company Number: NO-BRISTOL-MYERS SQUIBB COMPANY-16017006

PATIENT
  Age: 72 Year
  Sex: Female

DRUGS (2)
  1. GLUCOPHAGE [Suspect]
  2. DIOVAN [Suspect]

REACTIONS (3)
  - RENAL FAILURE [None]
  - DEATH [None]
  - LACTIC ACIDOSIS [None]
